FAERS Safety Report 16624647 (Version 1)
Quarter: 2019Q3

REPORT INFORMATION
  Report Type: Spontaneous
  Country: US (occurrence: US)
  Receive Date: 20190723
  Receipt Date: 20190723
  Transmission Date: 20191004
  Serious: Yes (Other)
  Sender: FDA-Public Use
  Company Number: None

PATIENT
  Age: 66 Year
  Sex: Male
  Weight: 87.3 kg

DRUGS (3)
  1. CIPROFLOXACIN SUBSTITUTED FOR CIPRO [Suspect]
     Active Substance: CIPROFLOXACIN
     Indication: PROSTATE INFECTION
     Dosage: ?          QUANTITY:1 TABLET(S);?
     Route: 048
     Dates: start: 20190619, end: 20190625
  2. ASPIRIN. [Concomitant]
     Active Substance: ASPIRIN
  3. TAMSULOSIN [Concomitant]
     Active Substance: TAMSULOSIN

REACTIONS (7)
  - Spinal pain [None]
  - Arthralgia [None]
  - Pain in extremity [None]
  - Tendon disorder [None]
  - Heart rate increased [None]
  - Gait inability [None]
  - Blood pressure increased [None]

NARRATIVE: CASE EVENT DATE: 20190627
